FAERS Safety Report 10025811 (Version 1)
Quarter: 2014Q1

REPORT INFORMATION
  Report Type: Spontaneous
  Country: IN (occurrence: None)
  Receive Date: 20140314
  Receipt Date: 20140314
  Transmission Date: 20141002
  Serious: Yes (Life-Threatening, Hospitalization)
  Sender: FDA-Public Use
  Company Number: 2014P1001977

PATIENT
  Age: 28 Year
  Sex: Female

DRUGS (1)
  1. AMLODIPINE [Suspect]
     Dosage: X1
     Route: 048

REACTIONS (16)
  - Shock [None]
  - Overdose [None]
  - Hypotension [None]
  - Hypoxia [None]
  - Respiratory failure [None]
  - Pleural effusion [None]
  - Non-cardiogenic pulmonary oedema [None]
  - Renal failure acute [None]
  - Dizziness [None]
  - Central venous pressure increased [None]
  - Gastrointestinal hypomotility [None]
  - Impaired gastric emptying [None]
  - Fluid overload [None]
  - Capillary leak syndrome [None]
  - Toxicity to various agents [None]
  - Traumatic lung injury [None]
